FAERS Safety Report 4328113-3 (Version None)
Quarter: 2004Q1

REPORT INFORMATION
  Report Type: 
  Country: None (occurrence: None)
  Receive Date: 20040319
  Receipt Date: 20031204
  Transmission Date: 20041129
  Serious: No
  Sender: FDA-Public Use
  Company Number: US-JNJFOC-20031201655

PATIENT
  Age: 37 Year
  Sex: Female
  Weight: 56.6996 kg

DRUGS (2)
  1. ORTHO EVRA [Suspect]
     Indication: MENSTRUATION IRREGULAR
     Dosage: 1 DOSE (S),  3 IN 4 WEEK, TRANSDERMAL
     Route: 062
  2. VITAMINS (VITAMINS) [Concomitant]

REACTIONS (2)
  - BREAST TENDERNESS [None]
  - METRORRHAGIA [None]
